FAERS Safety Report 13916842 (Version 2)
Quarter: 2017Q3

REPORT INFORMATION
  Report Type: Spontaneous
  Country: GR (occurrence: GR)
  Receive Date: 20170829
  Receipt Date: 20170919
  Transmission Date: 20171127
  Serious: Yes (Other)
  Sender: FDA-Public Use
  Company Number: GR-TEVA-799220ISR

PATIENT
  Age: 70 Year
  Sex: Male

DRUGS (7)
  1. CARVEDILOL. [Suspect]
     Active Substance: CARVEDILOL
     Indication: DRUG THERAPY
  2. RIVAROXABAN [Concomitant]
     Active Substance: RIVAROXABAN
     Indication: DRUG THERAPY
  3. EPLERENONE. [Concomitant]
     Active Substance: EPLERENONE
     Indication: DIURETIC THERAPY
  4. DIGOXIN. [Concomitant]
     Active Substance: DIGOXIN
  5. NITROGLYCERINE [Concomitant]
     Active Substance: NITROGLYCERIN
     Indication: NITRATE COMPOUND THERAPY
  6. FUROSEMIDE. [Concomitant]
     Active Substance: FUROSEMIDE
     Indication: DIURETIC THERAPY
  7. RAMIPRIL. [Concomitant]
     Active Substance: RAMIPRIL
     Indication: DRUG THERAPY

REACTIONS (11)
  - Fatigue [Unknown]
  - Normochromic anaemia [Unknown]
  - Drug ineffective [Unknown]
  - Cardiac failure [Unknown]
  - Ejection fraction decreased [Unknown]
  - Bundle branch block left [Unknown]
  - Atrial fibrillation [Unknown]
  - Dyspnoea [Unknown]
  - Pulmonary arterial pressure increased [Unknown]
  - Renal impairment [Unknown]
  - Orthopnoea [Unknown]
